FAERS Safety Report 8073484-8 (Version None)
Quarter: 2012Q1

REPORT INFORMATION
  Report Type: 
  Country: None (occurrence: None)
  Receive Date: 20120126
  Receipt Date: 20120126
  Transmission Date: 20120608
  Serious: Yes (Other)
  Sender: FDA-Public Use
  Company Number: None

PATIENT
  Age: 33 Year
  Sex: Female
  Weight: 65.77 kg

DRUGS (1)
  1. CLINDAMYCIN [Suspect]
     Indication: STAPHYLOCOCCAL INFECTION
     Dosage: 2 CAPSULES
     Route: 048
     Dates: start: 20120123, end: 20120124

REACTIONS (5)
  - SWELLING [None]
  - PRURITUS [None]
  - CHEST DISCOMFORT [None]
  - ERYTHEMA [None]
  - SWELLING FACE [None]
